FAERS Safety Report 10064804 (Version 1)
Quarter: 2014Q2

REPORT INFORMATION
  Report Type: Spontaneous
  Country: US (occurrence: None)
  Receive Date: 20140404
  Receipt Date: 20140404
  Transmission Date: 20141212
  Serious: Yes (Hospitalization)
  Sender: FDA-Public Use
  Company Number: UTC-044887

PATIENT
  Age: 66 Year
  Sex: Male
  Weight: 77.56 kg

DRUGS (1)
  1. REMODULIN (10 MILLIGRAM/MILLILITERS, INJECTION FOR INFUSION) (TREPROSTINIL SODIUM) [Suspect]
     Indication: COR PULMONALE CHRONIC
     Dosage: 0.033 UG/KG, 1 IN 1 MIN
     Route: 058
     Dates: start: 20090917

REACTIONS (6)
  - Fall [None]
  - Thrombosis in device [None]
  - Infusion site erythema [None]
  - Drug dose omission [None]
  - Device occlusion [None]
  - Infusion site haemorrhage [None]
